FAERS Safety Report 7343652-9 (Version None)
Quarter: 2011Q1

REPORT INFORMATION
  Report Type: 
  Country: None (occurrence: None)
  Receive Date: 20110310
  Receipt Date: 20100907
  Transmission Date: 20110831
  Serious: No
  Sender: FDA-Public Use
  Company Number: A0879846A

PATIENT
  Age: 58 Year
  Sex: Male

DRUGS (1)
  1. NICOTINE POLACRILEX [Suspect]

REACTIONS (3)
  - DRUG ADMINISTRATION ERROR [None]
  - ORAL DISCOMFORT [None]
  - ERUCTATION [None]
